FAERS Safety Report 6478373-8 (Version None)
Quarter: 2009Q4

REPORT INFORMATION
  Report Type: 
  Country: None (occurrence: None)
  Receive Date: 20091207
  Receipt Date: 20090129
  Transmission Date: 20100525
  Serious: No
  Sender: FDA-Public Use
  Company Number: US-AMGEN-KDL331106

PATIENT
  Sex: Female

DRUGS (1)
  1. ENBREL [Suspect]
     Indication: PSORIASIS
     Route: 058
     Dates: start: 20080501

REACTIONS (5)
  - COMPLEX REGIONAL PAIN SYNDROME [None]
  - COUGH [None]
  - HEADACHE [None]
  - LABORATORY TEST ABNORMAL [None]
  - LIMB INJURY [None]
